FAERS Safety Report 4575547-8 (Version None)
Quarter: 2005Q1

REPORT INFORMATION
  Report Type: 
  Country: None (occurrence: None)
  Receive Date: 20050128
  Receipt Date: 20050128
  Transmission Date: 20050727
  Serious: Yes (Congenital Anomaly)
  Sender: FDA-Public Use
  Company Number: None

PATIENT
  Age: 32 Year
  Sex: Female
  Weight: 3.6288 kg

DRUGS (1)
  1. LIPITOR [Suspect]
     Indication: BLOOD CHOLESTEROL INCREASED
     Dosage: 1   DAILY   ORAL
     Route: 048
     Dates: start: 20021201, end: 20040629

REACTIONS (3)
  - MYOPATHY [None]
  - NEONATAL DISORDER [None]
  - TRANSMISSION OF DRUG VIA SEMEN [None]
